FAERS Safety Report 17946254 (Version 1)
Quarter: 2020Q2

REPORT INFORMATION
  Report Type: Spontaneous
  Country: US (occurrence: US)
  Receive Date: 20200625
  Receipt Date: 20200625
  Transmission Date: 20200714
  Serious: No
  Sender: FDA-Public Use
  Company Number: US-VIRTUS PHARMACEUTICALS, LLC-2019VTS00033

PATIENT
  Sex: Female
  Weight: 81.63 kg

DRUGS (3)
  1. ESTROGEN [Suspect]
     Active Substance: ESTROGENS
  2. PROGESTERONE. [Suspect]
     Active Substance: PROGESTERONE
     Indication: HORMONE REPLACEMENT THERAPY
     Dosage: 1 DOSAGE UNITS, 1X/DAY
     Route: 048
  3. UNSPECIFIED BIRTH CONTROL [Concomitant]
     Active Substance: UNSPECIFIED INGREDIENT

REACTIONS (1)
  - Migraine with aura [Recovered/Resolved]
